FAERS Safety Report 25159236 (Version 1)
Quarter: 2025Q2

REPORT INFORMATION
  Report Type: Spontaneous
  Country: IT (occurrence: IT)
  Receive Date: 20250404
  Receipt Date: 20250404
  Transmission Date: 20250716
  Serious: No
  Sender: ALKEM
  Company Number: IT-ALKEM LABORATORIES LIMITED-IT-ALKEM-2024-05001

PATIENT
  Age: 22 Year
  Sex: Male

DRUGS (6)
  1. ARIPIPRAZOLE [Interacting]
     Active Substance: ARIPIPRAZOLE
     Indication: Bipolar I disorder
     Dosage: 14.6 MILLIGRAM, QD (DAILY) (INJECTION)
     Route: 030
  2. ARIPIPRAZOLE [Interacting]
     Active Substance: ARIPIPRAZOLE
     Dosage: 30 MILLIGRAM, QD (DAILY)
     Route: 048
  3. DELORAZEPAM [Interacting]
     Active Substance: DELORAZEPAM
     Indication: Bipolar I disorder
     Dosage: 3 MILLIGRAM, QD (DAILY)
     Route: 030
  4. DELORAZEPAM [Interacting]
     Active Substance: DELORAZEPAM
     Dosage: 1.5 MILLIGRAM, QD (DAILY)
     Route: 048
  5. DELORAZEPAM [Interacting]
     Active Substance: DELORAZEPAM
     Dosage: 0.5 MILLIGRAM, QD (DAILY)
     Route: 065
  6. LANSOPRAZOLE [Concomitant]
     Active Substance: LANSOPRAZOLE
     Indication: Bipolar I disorder
     Dosage: 15 MILLIGRAM, QD (DAILY)
     Route: 065

REACTIONS (2)
  - Drug interaction [Unknown]
  - Hiccups [Recovered/Resolved]
